FAERS Safety Report 5156439-2 (Version None)
Quarter: 2006Q4

REPORT INFORMATION
  Report Type: 
  Country: None (occurrence: None)
  Receive Date: 20061122
  Receipt Date: 20061012
  Transmission Date: 20070319
  Serious: Yes (Hospitalization)
  Sender: FDA-Public Use
  Company Number: US-ROCHE-467332

PATIENT
  Age: 34 Year
  Sex: Female
  Weight: 63.5 kg

DRUGS (1)
  1. ACCUTANE [Suspect]
     Route: 048
     Dates: start: 20060710, end: 20060921

REACTIONS (2)
  - DEPRESSION [None]
  - MANIA [None]
